FAERS Safety Report 20873446 (Version 1)
Quarter: 2022Q2

REPORT INFORMATION
  Report Type: Spontaneous
  Country: US (occurrence: US)
  Receive Date: 20220525
  Receipt Date: 20220525
  Transmission Date: 20220720
  Serious: No
  Sender: FDA-Public Use
  Company Number: US-UPSHER-SMITH LABORATORIES, LLC-2021USL00381

PATIENT
  Age: 82 Year
  Sex: Female
  Weight: 58.967 kg

DRUGS (5)
  1. POTASSIUM CHLORIDE [Suspect]
     Active Substance: POTASSIUM CHLORIDE
     Indication: Unevaluable event
     Dosage: 20 MEQ, 2X/DAY
     Route: 048
     Dates: start: 2020, end: 202105
  2. ENTRESTO [Concomitant]
     Active Substance: SACUBITRIL\VALSARTAN
     Dosage: ^SMALL DOSE^
  3. COREG [Concomitant]
     Active Substance: CARVEDILOL
     Dosage: ^SMALL DOSE^
  4. FUROSEMIDE [Concomitant]
     Active Substance: FUROSEMIDE
  5. TORSEMIDE [Concomitant]
     Active Substance: TORSEMIDE

REACTIONS (4)
  - Constipation [Recovered/Resolved]
  - Dehydration [Recovered/Resolved]
  - Dyschezia [Recovered/Resolved]
  - Product residue present [Recovered/Resolved]

NARRATIVE: CASE EVENT DATE: 20210101
